FAERS Safety Report 13696934 (Version 1)
Quarter: 2017Q2

REPORT INFORMATION
  Report Type: Report from Study
  Country: CN (occurrence: CN)
  Receive Date: 20170628
  Receipt Date: 20170628
  Transmission Date: 20170830
  Serious: Yes (Other)
  Sender: FDA-Public Use
  Company Number: CN-ROCHE-1726966

PATIENT
  Age: 66 Year
  Sex: Female
  Weight: 55 kg

DRUGS (1)
  1. AVASTIN [Suspect]
     Active Substance: BEVACIZUMAB
     Indication: COLON CANCER
     Route: 041
     Dates: start: 20150411

REACTIONS (6)
  - Depressed mood [Unknown]
  - General physical health deterioration [Unknown]
  - Abdominal pain [Unknown]
  - Sleep disorder [Unknown]
  - Pyrexia [Unknown]
  - Cervix haemorrhage uterine [Unknown]

NARRATIVE: CASE EVENT DATE: 20160221
